FAERS Safety Report 25146493 (Version 1)
Quarter: 2025Q2

REPORT INFORMATION
  Report Type: Report from Study
  Country: US (occurrence: US)
  Receive Date: 20250401
  Receipt Date: 20250401
  Transmission Date: 20250717
  Serious: Yes (Hospitalization, Other)
  Sender: TAKEDA
  Company Number: US-TAKEDA-2025TUS029496

PATIENT
  Sex: Male

DRUGS (1)
  1. MARIBAVIR [Suspect]
     Active Substance: MARIBAVIR
     Indication: Epstein-Barr virus associated lymphoproliferative disorder

REACTIONS (12)
  - Malaise [Unknown]
  - Hypotension [Unknown]
  - Hyponatraemia [Unknown]
  - Peripheral swelling [Unknown]
  - Cytomegalovirus infection reactivation [Unknown]
  - Hypokalaemia [Unknown]
  - Immunodeficiency [Unknown]
  - Hypocalcaemia [Unknown]
  - Hypoalbuminaemia [Unknown]
  - Hypomagnesaemia [Unknown]
  - Product use in unapproved indication [Unknown]
  - Anaemia [Unknown]
